FAERS Safety Report 21521992 (Version 1)
Quarter: 2022Q4

REPORT INFORMATION
  Report Type: Report from Study
  Country: US (occurrence: US)
  Receive Date: 20221028
  Receipt Date: 20221028
  Transmission Date: 20230113
  Serious: No
  Sender: FDA-Public Use
  Company Number: US-ABBVIE-4157894

PATIENT
  Sex: Female

DRUGS (1)
  1. VENCLEXTA [Suspect]
     Active Substance: VENETOCLAX
     Indication: Chronic lymphocytic leukaemia
     Route: 048
     Dates: start: 201908

REACTIONS (6)
  - Contusion [Unknown]
  - Hyperaesthesia teeth [Unknown]
  - Gingival bleeding [Unknown]
  - Diabetes mellitus [Unknown]
  - Inflammation [Unknown]
  - Musculoskeletal discomfort [Unknown]
